FAERS Safety Report 13998209 (Version 2)
Quarter: 2018Q4

REPORT INFORMATION
  Report Type: Spontaneous
  Country: US (occurrence: US)
  Receive Date: 20170921
  Receipt Date: 20181009
  Transmission Date: 20190204
  Serious: No
  Sender: FDA-Public Use
  Company Number: US-ACTELION-A-NJ2017-159788

PATIENT
  Age: 63 Year
  Sex: Female

DRUGS (3)
  1. DILTIAZEM. [Concomitant]
     Active Substance: DILTIAZEM
  2. OPSUMIT [Suspect]
     Active Substance: MACITENTAN
     Indication: PULMONARY ARTERIAL HYPERTENSION
     Dosage: 10 MG, QD
     Route: 048
     Dates: start: 2014
  3. XARELTO [Concomitant]
     Active Substance: RIVAROXABAN

REACTIONS (7)
  - Arthralgia [Unknown]
  - Stress [Unknown]
  - Peripheral swelling [Unknown]
  - Weight increased [Unknown]
  - Dry skin [Unknown]
  - Seasonal allergy [Unknown]
  - Eczema [Unknown]

NARRATIVE: CASE EVENT DATE: 2017
